FAERS Safety Report 7015280-6 (Version None)
Quarter: 2010Q3

REPORT INFORMATION
  Report Type: 
  Country: None (occurrence: None)
  Receive Date: 20100927
  Receipt Date: 20100916
  Transmission Date: 20110219
  Serious: Yes (Hospitalization)
  Sender: FDA-Public Use
  Company Number: JP-JNJFOC-20100906225

PATIENT
  Sex: Male
  Weight: 59 kg

DRUGS (11)
  1. GOLIMUMAB [Suspect]
     Indication: RHEUMATOID ARTHRITIS
     Route: 058
  2. GOLIMUMAB [Suspect]
     Route: 058
  3. METOLATE [Concomitant]
     Indication: RHEUMATOID ARTHRITIS
     Route: 048
  4. MERCAZOLE [Concomitant]
     Indication: HYPERTHYROIDISM
     Route: 048
  5. DICLOFENAC SODIUM [Concomitant]
     Indication: RHEUMATOID ARTHRITIS
     Route: 048
  6. ALTAT [Concomitant]
     Indication: GASTRITIS
     Route: 048
  7. FOLIAMIN [Concomitant]
     Indication: PROPHYLAXIS
     Route: 048
  8. MEDROL [Concomitant]
     Indication: RHEUMATOID ARTHRITIS
     Route: 048
  9. URSO 250 [Concomitant]
     Route: 048
  10. MELOXICAM [Concomitant]
     Indication: RHEUMATOID ARTHRITIS
     Route: 048
  11. VOLTAREN [Concomitant]
     Indication: RHEUMATOID ARTHRITIS
     Route: 062

REACTIONS (1)
  - PYELONEPHRITIS ACUTE [None]
